FAERS Safety Report 14584669 (Version 1)
Quarter: 2018Q1

REPORT INFORMATION
  Report Type: Spontaneous
  Country: US (occurrence: US)
  Receive Date: 20180301
  Receipt Date: 20180301
  Transmission Date: 20180509
  Serious: No
  Sender: FDA-Public Use
  Company Number: US-CELGENEUS-USA-20180208649

PATIENT
  Sex: Female
  Weight: 17.25 kg

DRUGS (2)
  1. THALOMID [Suspect]
     Active Substance: THALIDOMIDE
     Indication: BRAIN NEOPLASM MALIGNANT
     Dosage: 50 MILLIGRAM
     Route: 048
     Dates: start: 201710
  2. THALOMID [Suspect]
     Active Substance: THALIDOMIDE
     Indication: OFF LABEL USE

REACTIONS (1)
  - Shunt malfunction [Unknown]
